FAERS Safety Report 6381995-6 (Version None)
Quarter: 2009Q3

REPORT INFORMATION
  Report Type: 
  Country: None (occurrence: None)
  Receive Date: 20090925
  Receipt Date: 20090921
  Transmission Date: 20100115
  Serious: Yes (Other)
  Sender: FDA-Public Use
  Company Number: WAES 0909USA03033

PATIENT
  Age: 53 Year
  Sex: 0

DRUGS (3)
  1. HYZAAR [Suspect]
     Dosage: 100/25 MG/DAILY/PO
     Route: 048
     Dates: start: 19950101
  2. CAP SUNITINIB MALATE UNK [Suspect]
     Indication: NON-SMALL CELL LUNG CANCER
     Dosage: 37.5 MG/DAILY/PO
     Route: 048
     Dates: start: 20090626
  3. TOPROL-XL [Suspect]
     Dosage: 12.5 MG/DAILY/
     Dates: start: 20090727

REACTIONS (2)
  - HYPOKALAEMIA [None]
  - LEFT VENTRICULAR DYSFUNCTION [None]
